FAERS Safety Report 22176328 (Version 1)
Quarter: 2023Q2

REPORT INFORMATION
  Report Type: Spontaneous
  Country: AR (occurrence: AR)
  Receive Date: 20230405
  Receipt Date: 20230405
  Transmission Date: 20230721
  Serious: Yes (Other)
  Sender: FDA-Public Use
  Company Number: AR-002147023-NVSC2023AR078326

PATIENT
  Age: 75 Year
  Sex: Female

DRUGS (1)
  1. INDACATEROL MALEATE [Suspect]
     Active Substance: INDACATEROL MALEATE
     Indication: Chronic obstructive pulmonary disease
     Dosage: 150 MG, QD
     Dates: start: 2019

REACTIONS (4)
  - Choking [Unknown]
  - Diarrhoea [Unknown]
  - Memory impairment [Unknown]
  - Feeling of despair [Unknown]

NARRATIVE: CASE EVENT DATE: 20230326
